FAERS Safety Report 9377378 (Version 2)
Quarter: 2013Q3

REPORT INFORMATION
  Report Type: Spontaneous
  Country: ES (occurrence: ES)
  Receive Date: 20130701
  Receipt Date: 20130702
  Transmission Date: 20140515
  Serious: Yes (Death)
  Sender: FDA-Public Use
  Company Number: PHHY2013ES066734

PATIENT
  Sex: Male

DRUGS (2)
  1. GILENYA [Suspect]
     Indication: MULTIPLE SCLEROSIS
     Dosage: UNK
     Route: 048
     Dates: start: 20120305, end: 20120921
  2. INTERFERON BETA 1B [Concomitant]
     Dosage: 250 UG, UNK

REACTIONS (8)
  - Septic shock [Fatal]
  - Pyrexia [Fatal]
  - Dysuria [Fatal]
  - Multiple sclerosis relapse [Unknown]
  - Expanded disability status scale score increased [Unknown]
  - Central nervous system lesion [Unknown]
  - Incontinence [Unknown]
  - Multiple sclerosis [Unknown]
